FAERS Safety Report 20049407 (Version 4)
Quarter: 2024Q2

REPORT INFORMATION
  Report Type: Spontaneous
  Country: US (occurrence: US)
  Receive Date: 20211109
  Receipt Date: 20240424
  Transmission Date: 20240715
  Serious: No
  Sender: FDA-Public Use
  Company Number: US-PFIZER INC-202101046059

PATIENT
  Age: 60 Year
  Sex: Female
  Weight: 95.238 kg

DRUGS (5)
  1. INLYTA [Suspect]
     Active Substance: AXITINIB
     Indication: Renal cell carcinoma
     Dosage: 5MG TABLET BY MOUTH TWICE DAILY
     Route: 048
     Dates: start: 202106
  2. INLYTA [Suspect]
     Active Substance: AXITINIB
     Dosage: 10 MG, TWICE DAILY
     Route: 048
     Dates: start: 20210711
  3. INLYTA [Suspect]
     Active Substance: AXITINIB
     Dosage: 3 MG, 2X/DAY [TAKE 3 TABS EVERY 12 HOURS]
     Route: 048
  4. INLYTA [Suspect]
     Active Substance: AXITINIB
     Dosage: 3 X 1MG TABLETS BY MOUTH
     Route: 048
  5. KEYTRUDA [Suspect]
     Active Substance: PEMBROLIZUMAB

REACTIONS (6)
  - Arthralgia [Recovering/Resolving]
  - Palmar-plantar erythrodysaesthesia syndrome [Recovering/Resolving]
  - Weight decreased [Unknown]
  - Nausea [Unknown]
  - Fatigue [Recovering/Resolving]
  - Taste disorder [Recovering/Resolving]
